FAERS Safety Report 4277570-X (Version None)
Quarter: 2004Q1

REPORT INFORMATION
  Report Type: 
  Country: None (occurrence: None)
  Receive Date: 20040121
  Receipt Date: 20040112
  Transmission Date: 20041129
  Serious: Yes (Hospitalization)
  Sender: FDA-Public Use
  Company Number: 04H-163-0247065-00

PATIENT
  Sex: 0

DRUGS (1)
  1. VITAMIN K1 [Suspect]
     Indication: ANTICOAGULANT THERAPY

REACTIONS (2)
  - EMBOLISM [None]
  - IATROGENIC INJURY [None]
